FAERS Safety Report 9967195 (Version 2)
Quarter: 2014Q1

REPORT INFORMATION
  Report Type: Report from Study
  Country: US (occurrence: US)
  Receive Date: 20140305
  Receipt Date: 20140305
  Transmission Date: 20141002
  Serious: Yes (Hospitalization, Other)
  Sender: FDA-Public Use
  Company Number: US-ABBVIE-13P-163-1098527-00

PATIENT
  Age: 26 Year
  Sex: Male
  Weight: 77.18 kg

DRUGS (6)
  1. HUMIRA [Suspect]
     Indication: CROHN^S DISEASE
     Dates: start: 20130204, end: 20130204
  2. HUMIRA [Suspect]
     Dates: start: 20130204
  3. HUMIRA [Suspect]
     Dates: start: 20130218, end: 20130218
  4. HUMIRA [Suspect]
     Dates: start: 20130304
  5. HUMIRA [Suspect]
     Dates: start: 201305, end: 20130524
  6. CIMZIA [Concomitant]
     Indication: PRODUCT USED FOR UNKNOWN INDICATION
     Dates: start: 201305

REACTIONS (6)
  - Crohn^s disease [Not Recovered/Not Resolved]
  - Dysuria [Recovering/Resolving]
  - Cystitis noninfective [Recovering/Resolving]
  - Gastrointestinal perforation [Unknown]
  - Abscess [Unknown]
  - Drug ineffective [Unknown]
